FAERS Safety Report 5324409-7 (Version None)
Quarter: 2007Q2

REPORT INFORMATION
  Report Type: 
  Country: None (occurrence: None)
  Receive Date: 20070509
  Receipt Date: 20070424
  Transmission Date: 20071010
  Serious: Yes (Congenital Anomaly)
  Sender: FDA-Public Use
  Company Number: 2007RR-07225

PATIENT
  Sex: Male
  Weight: 3.5 kg

DRUGS (1)
  1. SERTRALINE [Suspect]
     Dosage: 50 MG, QD, TRANSPLACENTAL
     Route: 064

REACTIONS (2)
  - DRUG EXPOSURE DURING PREGNANCY [None]
  - LIMB MALFORMATION [None]
